FAERS Safety Report 25300388 (Version 1)
Quarter: 2025Q2

REPORT INFORMATION
  Report Type: Spontaneous
  Country: US (occurrence: US)
  Receive Date: 20250512
  Receipt Date: 20250512
  Transmission Date: 20250717
  Serious: No
  Sender: COHERUS
  Company Number: US-COHERUS BIOSCIENCES, INC-2025-COH-US000409

PATIENT

DRUGS (6)
  1. UDENYCA [Suspect]
     Active Substance: PEGFILGRASTIM-CBQV
     Indication: Infection prophylaxis
     Dosage: 6 MG, Q2WEEKS
     Route: 058
     Dates: start: 20250131
  2. DACARBAZINE [Concomitant]
     Active Substance: DACARBAZINE
  3. VINBLASTINE [Concomitant]
     Active Substance: VINBLASTINE
  4. DOXORUBICIN [Concomitant]
     Active Substance: DOXORUBICIN
  5. OPDIVO [Concomitant]
     Active Substance: NIVOLUMAB
  6. EMEND [Concomitant]
     Active Substance: APREPITANT
     Indication: Nausea

REACTIONS (2)
  - Device malfunction [Unknown]
  - Product dose omission issue [Not Recovered/Not Resolved]

NARRATIVE: CASE EVENT DATE: 20250426
